FAERS Safety Report 16394160 (Version 1)
Quarter: 2019Q2

REPORT INFORMATION
  Report Type: Report from Study
  Country: US (occurrence: US)
  Receive Date: 20190605
  Receipt Date: 20190605
  Transmission Date: 20190711
  Serious: Yes (Death)
  Sender: FDA-Public Use
  Company Number: US-TAIHO ONCOLOGY  INC-EU-2019-01473

PATIENT
  Age: 62 Year
  Sex: Male
  Weight: 106.69 kg

DRUGS (20)
  1. LONSURF [Suspect]
     Active Substance: TIPIRACIL HYDROCHLORIDE\TRIFLURIDINE
     Dosage: CURRENT CYCLE UNKNOWN
     Route: 048
  2. STIVARGA [Concomitant]
     Active Substance: REGORAFENIB
     Dosage: NI
  3. MINERAL OIL. [Concomitant]
     Active Substance: MINERAL OIL
     Dosage: NI
  4. MULTIVITAMINS [Concomitant]
     Active Substance: VITAMINS
     Dosage: NI
  5. PROMETHAZINE [Concomitant]
     Active Substance: PROMETHAZINE\PROMETHAZINE HYDROCHLORIDE
     Dosage: NI
  6. MIRALAX [Concomitant]
     Active Substance: POLYETHYLENE GLYCOL 3350
  7. ENEMA (SODIUM PHOSPHATE, DIBASIC\SODIUM PHOSPHATE, MONOBASIC) [Concomitant]
     Active Substance: SODIUM PHOSPHATE, DIBASIC\SODIUM PHOSPHATE, MONOBASIC
     Dosage: 19G-7G
  8. PREPARATION H NOS [Concomitant]
     Active Substance: COCOA BUTTER\PETROLATUM\PHENYLEPHRINE HYDROCHLORIDE\PHENYLEPHRINE HYDROCHLORIDE OR MINERAL OIL
  9. LONSURF [Suspect]
     Active Substance: TIPIRACIL HYDROCHLORIDE\TRIFLURIDINE
     Indication: COLON CANCER
     Dosage: LONSURF 15 MG AND 20 MG TABLETS?CYCLE UNKNOWN. LAST SHIPMENT DONE ON 07 MARCH 2019
     Route: 048
  10. LORAZEPAM. [Concomitant]
     Active Substance: LORAZEPAM
     Dosage: NI
  11. PANTOPRAZOLE [Concomitant]
     Active Substance: PANTOPRAZOLE
     Dosage: NI
  12. MORPHINE [Concomitant]
     Active Substance: MORPHINE
     Dosage: NI
  13. OXYCODONE [Concomitant]
     Active Substance: OXYCODONE
     Dosage: NI
  14. CARVEDILOL. [Concomitant]
     Active Substance: CARVEDILOL
     Dosage: NI
  15. ONDANSETRON [Concomitant]
     Active Substance: ONDANSETRON
     Dosage: NI
  16. DEXAMETHASONE. [Concomitant]
     Active Substance: DEXAMETHASONE
     Dosage: NI
  17. CAPECITABINE. [Concomitant]
     Active Substance: CAPECITABINE
     Dosage: NI
  18. VITAMIN C [Concomitant]
     Active Substance: ASCORBIC ACID
  19. HYDROMORPHONE [Concomitant]
     Active Substance: HYDROMORPHONE
     Dosage: NI
  20. SUCRALFATE. [Concomitant]
     Active Substance: SUCRALFATE
     Dosage: NI

REACTIONS (2)
  - Death [Fatal]
  - Pain [Unknown]

NARRATIVE: CASE EVENT DATE: 20190518
